FAERS Safety Report 8799585 (Version 1)
Quarter: 2012Q4

REPORT INFORMATION
  Report Type: Spontaneous
  Country: GB (occurrence: None)
  Receive Date: 20120914
  Receipt Date: 20120914
  Transmission Date: 20130627
  Serious: Yes (Other)
  Sender: FDA-Public Use
  Company Number: 2012HINREG0022

PATIENT
  Age: 37 Year
  Sex: Female

DRUGS (3)
  1. NEVIRAPINE [Suspect]
     Indication: HIV INFECTION
     Route: 048
     Dates: end: 20120614
  2. FLUOXETINE (FLUOXETINE) [Concomitant]
  3. TRUVADA (TRUVADA) [Concomitant]

REACTIONS (5)
  - Abdominal pain [None]
  - Gastrointestinal hypermotility [None]
  - Diarrhoea [None]
  - Medication residue [None]
  - Unevaluable event [None]
